FAERS Safety Report 12561558 (Version 1)
Quarter: 2016Q3

REPORT INFORMATION
  Report Type: Report from Study
  Country: US (occurrence: US)
  Receive Date: 20160715
  Receipt Date: 20160715
  Transmission Date: 20161109
  Serious: Yes (Other)
  Sender: FDA-Public Use
  Company Number: US-AMGEN-USASL2016089343

PATIENT
  Age: 61 Year
  Sex: Female

DRUGS (1)
  1. PROLIA [Suspect]
     Active Substance: DENOSUMAB
     Indication: PRODUCT USED FOR UNKNOWN INDICATION
     Dosage: UNK
     Route: 065

REACTIONS (6)
  - Goitre [Unknown]
  - Blood parathyroid hormone increased [Recovered/Resolved]
  - Bone density abnormal [Unknown]
  - Thyroid cancer [Unknown]
  - Thyroid mass [Unknown]
  - Drug dose omission [Unknown]

NARRATIVE: CASE EVENT DATE: 201605
